FAERS Safety Report 16094416 (Version 6)
Quarter: 2020Q1

REPORT INFORMATION
  Report Type: Spontaneous
  Country: US (occurrence: US)
  Receive Date: 20190320
  Receipt Date: 20200207
  Transmission Date: 20200409
  Serious: Yes (Other)
  Sender: FDA-Public Use
  Company Number: US-PFIZER INC-2018528163

PATIENT
  Age: 58 Year
  Sex: Female

DRUGS (2)
  1. PREMARIN [Suspect]
     Active Substance: ESTROGENS, CONJUGATED
     Indication: MENOPAUSAL SYMPTOMS
     Dosage: 0.5GRAMS EVERY DAY FOR 14 DAYS
     Dates: start: 20181219
  2. PREMARIN [Suspect]
     Active Substance: ESTROGENS, CONJUGATED
     Dosage: 0.5 G, 2X/WEEK (APPLIED AT NIGHT WITH APPLICATOR)

REACTIONS (9)
  - Osteoporosis [Unknown]
  - Product dispensing error [Unknown]
  - Psychomotor hyperactivity [Unknown]
  - Intentional product misuse [Unknown]
  - Anxiety [Unknown]
  - Feeling abnormal [Unknown]
  - Emotional disorder [Unknown]
  - Frustration tolerance decreased [Unknown]
  - Paranoid personality disorder [Unknown]

NARRATIVE: CASE EVENT DATE: 20181219
